FAERS Safety Report 20470011 (Version 2)
Quarter: 2022Q1

REPORT INFORMATION
  Report Type: Report from Study
  Country: US (occurrence: US)
  Receive Date: 20220214
  Receipt Date: 20220302
  Transmission Date: 20220423
  Serious: Yes (Hospitalization)
  Sender: FDA-Public Use
  Company Number: US-GLAXOSMITHKLINE-US2022GSK023122

PATIENT
  Age: 27 Year
  Sex: Female
  Weight: 58.06 kg

DRUGS (14)
  1. DOSTARLIMAB [Suspect]
     Active Substance: DOSTARLIMAB
     Indication: Breast cancer
     Dosage: 500 MG, Z-Q3WEEKS
     Route: 042
     Dates: start: 20211011, end: 20211011
  2. DOSTARLIMAB [Suspect]
     Active Substance: DOSTARLIMAB
     Dosage: 500 MG, Z-Q3WEEKS
     Route: 042
     Dates: start: 20211220, end: 20211220
  3. CARBOPLATIN [Suspect]
     Active Substance: CARBOPLATIN
     Indication: Breast cancer
     Dosage: 300 MG, Z- ADDED ON
     Route: 042
     Dates: start: 20211220, end: 20211220
  4. PACLITAXEL [Suspect]
     Active Substance: PACLITAXEL
     Indication: Breast cancer
     Dosage: 360/15 MG, Z-1 DAILY X 3 DAYS A WEEK
     Route: 048
     Dates: start: 20211011, end: 20211220
  5. DOXORUBICIN [Suspect]
     Active Substance: DOXORUBICIN
     Indication: Breast cancer
     Dosage: 100 MG, Z-Q2 WEEKS
     Route: 042
     Dates: start: 20211227, end: 20211227
  6. CYCLOPHOSPHAMIDE [Suspect]
     Active Substance: CYCLOPHOSPHAMIDE
     Indication: Breast cancer
     Dosage: 996 MG, Z-Q2 WEEKS
     Route: 042
     Dates: start: 20211227, end: 20211227
  7. OMEPRAZOLE [Concomitant]
     Active Substance: OMEPRAZOLE
     Dosage: 40 MG, QD
     Route: 048
  8. LIDOCAINE [Concomitant]
     Active Substance: LIDOCAINE
     Dosage: 1 DF, TID
     Route: 061
  9. NORCO TABLET [Concomitant]
     Indication: Pain
     Dosage: 1 DF, Z- EVERY 6 HOURS PRN
     Route: 048
  10. PROCHLORPERAZINE TABLET [Concomitant]
     Indication: Nausea
     Dosage: 10 MG, Z- EVERY 6 HOURS PRN
     Route: 048
  11. PROCHLORPERAZINE TABLET [Concomitant]
     Indication: Vomiting
     Dosage: 10 MG, Z- EVERY 4 HOURS PRN
     Route: 048
  12. PROMETHAZINE TABLET [Concomitant]
     Dosage: 25 MG, Z- EVERY 4 HOURS PRN
     Route: 048
  13. PROMETHAZINE TABLET [Concomitant]
     Dosage: 12.5 MG, Z-EVERY 4 HOURS PRN
     Route: 048
  14. ENCEQUIDAR MESYLATE MONOHYDRATE [Suspect]
     Active Substance: ENCEQUIDAR MESYLATE MONOHYDRATE

REACTIONS (1)
  - Syncope [Not Recovered/Not Resolved]

NARRATIVE: CASE EVENT DATE: 20220205
